FAERS Safety Report 5088789-2 (Version None)
Quarter: 2006Q3

REPORT INFORMATION
  Report Type: 
  Country: None (occurrence: None)
  Receive Date: 20060825
  Receipt Date: 20040825
  Transmission Date: 20061208
  Serious: Yes (Other)
  Sender: FDA-Public Use
  Company Number: B0343481A

PATIENT
  Age: 31 Year
  Sex: Male

DRUGS (4)
  1. COMBIVIR [Suspect]
     Indication: HIV INFECTION
     Dosage: 1TAB TWICE PER DAY
     Route: 048
     Dates: start: 20040712, end: 20040823
  2. ABACAVIR SULFATE [Suspect]
     Indication: HIV INFECTION
     Dosage: 300MG TWICE PER DAY
     Route: 048
     Dates: start: 20040712, end: 20040823
  3. ASPIRIN [Concomitant]
  4. TENOFOVIR [Concomitant]
     Dates: start: 20040826

REACTIONS (11)
  - BURNING SENSATION [None]
  - CHILLS [None]
  - COUGH [None]
  - ERYTHEMA [None]
  - FATIGUE [None]
  - HEADACHE [None]
  - HYPERSENSITIVITY [None]
  - OEDEMA [None]
  - PYREXIA [None]
  - RASH GENERALISED [None]
  - URTICARIA [None]
